FAERS Safety Report 6454747-6 (Version None)
Quarter: 2009Q4

REPORT INFORMATION
  Report Type: 
  Country: None (occurrence: None)
  Receive Date: 20091124
  Receipt Date: 20091112
  Transmission Date: 20100525
  Serious: Yes (Other)
  Sender: FDA-Public Use
  Company Number: CN-WATSON-2009-09857

PATIENT

DRUGS (4)
  1. METHYLPREDNISOLONE ACETATE [Suspect]
     Indication: TRANSPLANT REJECTION
     Dosage: 10 MG/KG, FOR 3-5 DAYS
  2. CYCLOSPORINE [Suspect]
     Indication: RENAL TRANSPLANT
     Dosage: 5 MG/KG, DAILY
  3. AZATHIOPRINE [Suspect]
     Indication: RENAL TRANSPLANT
     Dosage: 2 MG/KG, DAILY
  4. MYCOPHENOLATE MOFETIL [Suspect]
     Indication: RENAL TRANSPLANT
     Dosage: 1X2G OR 2X750MG BASED ON WT

REACTIONS (1)
  - TRANSITIONAL CELL CARCINOMA [None]
